FAERS Safety Report 25845360 (Version 1)
Quarter: 2025Q3

REPORT INFORMATION
  Report Type: Spontaneous
  Country: CN (occurrence: CN)
  Receive Date: 20250925
  Receipt Date: 20250925
  Transmission Date: 20251021
  Serious: Yes (Hospitalization, Other)
  Sender: ALKEM
  Company Number: None

PATIENT
  Age: 28 Year
  Sex: Female

DRUGS (3)
  1. QUETIAPINE FUMARATE [Suspect]
     Active Substance: QUETIAPINE FUMARATE
     Indication: Bipolar disorder
     Dosage: 200 MILLIGRAM, QD
     Route: 065
  2. MEGESTROL ACETATE [Suspect]
     Active Substance: MEGESTROL ACETATE
     Indication: Endometrial hyperplasia with cellular atypia
     Dosage: 160 MILLIGRAM, BID
     Route: 065
  3. MEGESTROL ACETATE [Suspect]
     Active Substance: MEGESTROL ACETATE
     Dosage: 80 MILLIGRAM, BID
     Route: 065

REACTIONS (2)
  - Mineralocorticoid deficiency [Recovered/Resolved]
  - Secondary adrenocortical insufficiency [Recovered/Resolved]
